FAERS Safety Report 21509670 (Version 1)
Quarter: 2022Q4

REPORT INFORMATION
  Report Type: Spontaneous
  Country: US (occurrence: None)
  Receive Date: 20221026
  Receipt Date: 20221026
  Transmission Date: 20230113
  Serious: No
  Sender: FDA-Public Use
  Company Number: US-NESTLEHEALTHSCIENCE-2022000028

PATIENT
  Age: 40 Year
  Sex: Male
  Weight: 59 kg

DRUGS (5)
  1. ZENPEP [Suspect]
     Active Substance: PANCRELIPASE AMYLASE\PANCRELIPASE LIPASE\PANCRELIPASE PROTEASE
     Indication: Product used for unknown indication
     Dosage: 3 PER MEAL AND 1-2 PER SNACKS
     Dates: start: 20200404
  2. TRIKAFTA [Suspect]
     Active Substance: ELEXACAFTOR\IVACAFTOR\TEZACAFTOR
     Indication: Cystic fibrosis
     Dosage: 2 TAB(100 MG?ELEXACAFTOR/ 50 MG?TEZACAFTOR/ 75 MG?IVACAFTOR) AM, 1 TAB?(150MG IVACAFTOR) PM
     Dates: start: 20200415
  3. ALBUTEROL [Concomitant]
     Active Substance: ALBUTEROL
  4. BETHKIS [Concomitant]
     Active Substance: TOBRAMYCIN
  5. PULMOZYME [Concomitant]
     Active Substance: DORNASE ALFA

REACTIONS (4)
  - Weight increased [Unknown]
  - Liver function test increased [Recovered/Resolved]
  - Headache [Recovered/Resolved]
  - Cough [Unknown]

NARRATIVE: CASE EVENT DATE: 20200101
